FAERS Safety Report 9690168 (Version 1)
Quarter: 2013Q4

REPORT INFORMATION
  Report Type: Report from Study
  Country: BR (occurrence: BR)
  Receive Date: 20131115
  Receipt Date: 20131115
  Transmission Date: 20140711
  Serious: Yes (Life-Threatening)
  Sender: FDA-Public Use
  Company Number: PHHY2013BR130148

PATIENT
  Sex: Female

DRUGS (4)
  1. ACLASTA [Suspect]
     Indication: OSTEOPOROSIS
     Dosage: 5 MG, UNK
     Route: 042
     Dates: start: 2011
  2. ENALAPRIL [Concomitant]
     Indication: HYPERTENSION
     Dosage: 2 DF, UNK
     Route: 048
  3. RECONTER [Concomitant]
     Indication: DEPRESSION
     Dosage: 1 DF, UNK
     Route: 048
     Dates: start: 2013
  4. OSCAL D                            /00944201/ [Concomitant]
     Dosage: 400 MG, UNK

REACTIONS (2)
  - Feeling abnormal [Unknown]
  - Malaise [Not Recovered/Not Resolved]
